FAERS Safety Report 8476730-1 (Version None)
Quarter: 2012Q2

REPORT INFORMATION
  Report Type: 
  Country: None (occurrence: None)
  Receive Date: 20120628
  Receipt Date: 20120621
  Transmission Date: 20120825
  Serious: Yes (Hospitalization)
  Sender: FDA-Public Use
  Company Number: US-ABBOTT-12P-163-0948793-00

PATIENT
  Sex: Female

DRUGS (8)
  1. XANAX [Suspect]
     Indication: PRODUCT USED FOR UNKNOWN INDICATION
  2. LETAIRIS [Suspect]
     Indication: PULMONARY HYPERTENSION
     Dosage: 10 MG DAILY
     Route: 048
     Dates: start: 20100730
  3. CELEXA [Suspect]
     Indication: PRODUCT USED FOR UNKNOWN INDICATION
  4. VICODIN [Suspect]
     Indication: PRODUCT USED FOR UNKNOWN INDICATION
  5. EFFEXOR [Suspect]
     Indication: PRODUCT USED FOR UNKNOWN INDICATION
  6. LITHIUM CARBONATE [Suspect]
     Indication: PRODUCT USED FOR UNKNOWN INDICATION
     Route: 065
  7. SEROQUEL [Suspect]
     Indication: PRODUCT USED FOR UNKNOWN INDICATION
  8. GEODON [Suspect]
     Indication: PRODUCT USED FOR UNKNOWN INDICATION

REACTIONS (1)
  - SYNCOPE [None]
